FAERS Safety Report 24830818 (Version 1)
Quarter: 2025Q1

REPORT INFORMATION
  Report Type: Spontaneous
  Country: DE (occurrence: DE)
  Receive Date: 20250110
  Receipt Date: 20250110
  Transmission Date: 20250409
  Serious: Yes (Other)
  Sender: CHEPLAPHARM
  Company Number: None

PATIENT
  Age: 21 Year
  Sex: Male

DRUGS (7)
  1. QUETIAPINE [Interacting]
     Active Substance: QUETIAPINE
     Dosage: DAILY DOSE: 50 MILLIGRAM
     Route: 048
     Dates: start: 20240202, end: 20240205
  2. OLANZAPINE [Suspect]
     Active Substance: OLANZAPINE
  3. ZUCLOPENTHIXOL [Interacting]
     Active Substance: ZUCLOPENTHIXOL
     Route: 030
     Dates: start: 20240202
  4. MIRTAZAPINE [Interacting]
     Active Substance: MIRTAZAPINE
     Dosage: B.A.W.?DAILY DOSE: 15 MILLIGRAM
     Route: 048
     Dates: start: 20240130
  5. DIAZEPAM [Concomitant]
     Active Substance: DIAZEPAM
     Route: 048
     Dates: start: 20240205
  6. LORAZEPAM [Concomitant]
     Active Substance: LORAZEPAM
     Dosage: DAILY DOSE: 4 MILLIGRAM
     Route: 048
     Dates: start: 20240128, end: 20240212
  7. VALPROATE [Concomitant]
     Active Substance: VALPROIC ACID

REACTIONS (6)
  - Dyskinesia [Recovered/Resolved]
  - Dystonia [Recovered/Resolved]
  - Dyskinesia [Recovered/Resolved]
  - Torticollis [Recovered/Resolved]
  - Dysphagia [Recovered/Resolved]
  - Drug interaction [Unknown]

NARRATIVE: CASE EVENT DATE: 20240205
